FAERS Safety Report 6683140-6 (Version None)
Quarter: 2010Q2

REPORT INFORMATION
  Report Type: 
  Country: None (occurrence: None)
  Receive Date: 20100415
  Receipt Date: 20100406
  Transmission Date: 20101027
  Serious: No
  Sender: FDA-Public Use
  Company Number: US-ASTRAZENECA-2010SE15372

PATIENT
  Sex: Female

DRUGS (5)
  1. PRILOSEC OTC [Suspect]
     Route: 048
  2. TRIAMTERENE [Concomitant]
  3. VERAPAMIL [Concomitant]
  4. DIGOXIN [Concomitant]
  5. ETODOLAC [Concomitant]

REACTIONS (6)
  - HYPERSENSITIVITY [None]
  - LABELLED DRUG-DRUG INTERACTION MEDICATION ERROR [None]
  - LIP SWELLING [None]
  - NAUSEA [None]
  - OEDEMA MOUTH [None]
  - URTICARIA [None]
